FAERS Safety Report 24181422 (Version 1)
Quarter: 2024Q3

REPORT INFORMATION
  Report Type: Spontaneous
  Country: US (occurrence: None)
  Receive Date: 20240807
  Receipt Date: 20240807
  Transmission Date: 20241016
  Serious: Yes (Other)
  Sender: Laboratoire X.O
  Company Number: US-Laboratoire X.O-NOD202408-000106

PATIENT
  Age: 35 Year
  Sex: Male

DRUGS (2)
  1. COCAINE HYDROCHLORIDE [Suspect]
     Active Substance: COCAINE HYDROCHLORIDE
     Indication: Product used for unknown indication
     Dosage: UNKNOWN
  2. METHAMPHETAMINE [Suspect]
     Active Substance: METHAMPHETAMINE
     Indication: Product used for unknown indication
     Dosage: UNKNOWN

REACTIONS (3)
  - Malignant catatonia [Recovered/Resolved]
  - Toxicity to various agents [Unknown]
  - Psychotic disorder [Recovered/Resolved]
